FAERS Safety Report 6817379-3 (Version None)
Quarter: 2010Q3

REPORT INFORMATION
  Report Type: 
  Country: None (occurrence: None)
  Receive Date: 20100706
  Receipt Date: 20100625
  Transmission Date: 20110219
  Serious: Yes (Hospitalization)
  Sender: FDA-Public Use
  Company Number: US-JNJFOC-20100607959

PATIENT
  Age: 82 Year
  Sex: Female
  Weight: 58.97 kg

DRUGS (9)
  1. TYLENOL (CAPLET) [Suspect]
     Route: 048
  2. TYLENOL (CAPLET) [Suspect]
     Indication: ARTHRITIS
     Dosage: 1300 MG ON 04-JUN-10, 23-JUN-10, 24-JUN-10
     Route: 048
  3. NEURONTIN [Suspect]
     Indication: NEURALGIA
     Route: 065
  4. VITAMIN TAB [Concomitant]
     Indication: NUTRITIONAL SUPPORT
  5. PRILOSEC [Concomitant]
     Indication: GASTROOESOPHAGEAL REFLUX DISEASE
     Route: 065
  6. DILTIAZEM [Concomitant]
     Indication: CARDIAC DISORDER
     Route: 065
  7. CALCIUM CARBONATE [Concomitant]
     Indication: NUTRITIONAL SUPPORT
  8. FISH OIL [Concomitant]
     Indication: NUTRITIONAL SUPPORT
  9. OTHER THERAPEUTIC PRODUCT [Concomitant]
     Indication: MACULAR DEGENERATION

REACTIONS (1)
  - DIZZINESS [None]
